FAERS Safety Report 10656812 (Version 1)
Quarter: 2014Q4

REPORT INFORMATION
  Report Type: Report from Study
  Country: SE (occurrence: SE)
  Receive Date: 20141217
  Receipt Date: 20141217
  Transmission Date: 20150529
  Serious: Yes (Hospitalization, Other)
  Sender: FDA-Public Use
  Company Number: SE-ROCHE-1506473

PATIENT
  Age: 49 Year
  Sex: Female
  Weight: 89 kg

DRUGS (3)
  1. SINGULAIR [Concomitant]
     Active Substance: MONTELUKAST SODIUM
  2. XOLAIR [Suspect]
     Active Substance: OMALIZUMAB
     Indication: CHRONIC SPONTANEOUS URTICARIA
     Route: 058
     Dates: start: 20131118, end: 20131118
  3. FEXOFENADINE [Concomitant]
     Active Substance: FEXOFENADINE\FEXOFENADINE HYDROCHLORIDE

REACTIONS (13)
  - Erythema [Unknown]
  - Tremor [Unknown]
  - Blood pressure decreased [Unknown]
  - Dyspnoea [Unknown]
  - Pruritus [Unknown]
  - Drug ineffective [Unknown]
  - Urticaria [Not Recovered/Not Resolved]
  - Tachycardia [Unknown]
  - Nausea [Unknown]
  - Product use issue [Unknown]
  - Pharyngeal oedema [Unknown]
  - Feeling abnormal [Unknown]
  - Palpitations [Unknown]

NARRATIVE: CASE EVENT DATE: 20131118
